FAERS Safety Report 11384355 (Version 1)
Quarter: 2015Q3

REPORT INFORMATION
  Report Type: Spontaneous
  Country: US (occurrence: US)
  Receive Date: 20150811
  Receipt Date: 20150811
  Transmission Date: 20151125
  Serious: No
  Sender: FDA-Public Use
  Company Number: US-ELI_LILLY_AND_COMPANY-US201009007290

PATIENT
  Age: 68 Year
  Sex: Male
  Weight: 102.4 kg

DRUGS (2)
  1. FLOMAX [Concomitant]
     Active Substance: TAMSULOSIN HYDROCHLORIDE
  2. CIALIS [Suspect]
     Active Substance: TADALAFIL
     Indication: ERECTILE DYSFUNCTION
     Dosage: 5 MG, UNK
     Dates: end: 20101015

REACTIONS (5)
  - Drug ineffective [Not Recovered/Not Resolved]
  - Tinnitus [Recovered/Resolved]
  - Flushing [Recovered/Resolved]
  - Nervousness [Recovered/Resolved]
  - Hypoacusis [Recovered/Resolved]
